FAERS Safety Report 24563997 (Version 2)
Quarter: 2024Q4

REPORT INFORMATION
  Report Type: Spontaneous
  Country: US (occurrence: US)
  Receive Date: 20241030
  Receipt Date: 20241031
  Transmission Date: 20250115
  Serious: No
  Sender: ABBVIE
  Company Number: US-ABBVIE-5978809

PATIENT

DRUGS (1)
  1. KYBELLA [Suspect]
     Active Substance: DEOXYCHOLIC ACID
     Indication: Muscle hypertrophy
     Route: 058

REACTIONS (1)
  - Off label use [Unknown]
